FAERS Safety Report 17608265 (Version 1)
Quarter: 2020Q2

REPORT INFORMATION
  Report Type: Spontaneous
  Country: CN (occurrence: CN)
  Receive Date: 20200401
  Receipt Date: 20200401
  Transmission Date: 20200713
  Serious: Yes (Other)
  Sender: FDA-Public Use
  Company Number: CN-ROCHE-2571350

PATIENT
  Age: 45 Year
  Sex: Female

DRUGS (9)
  1. XELODA [Suspect]
     Active Substance: CAPECITABINE
     Indication: INVASIVE DUCTAL BREAST CARCINOMA
     Route: 048
     Dates: start: 201906, end: 201909
  2. TAMOXIFEN [Concomitant]
     Active Substance: TAMOXIFEN
     Route: 048
     Dates: start: 201806, end: 201904
  3. LAPATINIB [Concomitant]
     Active Substance: LAPATINIB
     Indication: INVASIVE DUCTAL BREAST CARCINOMA
     Route: 065
     Dates: start: 201906, end: 201909
  4. HERCEPTIN [Suspect]
     Active Substance: TRASTUZUMAB
     Indication: INVASIVE DUCTAL BREAST CARCINOMA
     Dosage: EC-TH REGIMEN, INITIAL 8MG/KG, MAINTAIN 6MG/KG
     Route: 065
     Dates: start: 201712, end: 201804
  5. KADCYLA [Suspect]
     Active Substance: ADO-TRASTUZUMAB EMTANSINE
     Indication: INVASIVE DUCTAL BREAST CARCINOMA
     Route: 041
     Dates: start: 20190901
  6. CYCLOPHOSPHAMIDE. [Concomitant]
     Active Substance: CYCLOPHOSPHAMIDE
     Indication: INVASIVE DUCTAL BREAST CARCINOMA
     Dosage: EC-TH REGIMEN
     Route: 065
     Dates: start: 201712, end: 201804
  7. DOCETAXEL. [Concomitant]
     Active Substance: DOCETAXEL
     Indication: INVASIVE DUCTAL BREAST CARCINOMA
     Dosage: EC-TH REGIMEN
     Route: 065
     Dates: start: 201712, end: 201804
  8. EPIRUBICIN [Concomitant]
     Active Substance: EPIRUBICIN
     Indication: INVASIVE DUCTAL BREAST CARCINOMA
     Dosage: EC-TH REGIMEN
     Route: 065
     Dates: start: 201712, end: 201804
  9. HERCEPTIN [Suspect]
     Active Substance: TRASTUZUMAB
     Route: 065
     Dates: start: 201806, end: 201904

REACTIONS (10)
  - Pneumonia [Unknown]
  - Splenomegaly [Unknown]
  - Pleural effusion [Unknown]
  - Interstitial lung disease [Unknown]
  - Nephrocalcinosis [Unknown]
  - Rib fracture [Unknown]
  - Haemoptysis [Recovered/Resolved]
  - Cough [Recovering/Resolving]
  - Vomiting [Unknown]
  - Blood bilirubin increased [Unknown]

NARRATIVE: CASE EVENT DATE: 201904
